FAERS Safety Report 8382121-4 (Version None)
Quarter: 2012Q2

REPORT INFORMATION
  Report Type: 
  Country: None (occurrence: None)
  Receive Date: 20120524
  Receipt Date: 20120516
  Transmission Date: 20120825
  Serious: Yes (Hospitalization)
  Sender: FDA-Public Use
  Company Number: FR-PFIZER INC-2012122072

PATIENT
  Age: 48 Year
  Sex: Male
  Weight: 78 kg

DRUGS (4)
  1. VFEND [Suspect]
     Dosage: 250 MG, 2X/DAY
     Route: 048
     Dates: start: 20110822
  2. BACTRIM [Suspect]
     Dosage: UNK
     Route: 048
     Dates: start: 20110101, end: 20111006
  3. VFEND [Suspect]
     Indication: BRONCHOPULMONARY ASPERGILLOSIS
     Dosage: 200 MG, 2X/DAY
     Route: 048
     Dates: start: 20110725
  4. VFEND [Suspect]
     Dosage: 300 MG, 2X/DAY
     Route: 048
     Dates: start: 20111006, end: 20111017

REACTIONS (3)
  - SKIN DISORDER [None]
  - ERYTHEMA [None]
  - DERMATITIS BULLOUS [None]
